FAERS Safety Report 8179990-X (Version None)
Quarter: 2012Q1

REPORT INFORMATION
  Report Type: 
  Country: None (occurrence: None)
  Receive Date: 20120229
  Receipt Date: 20120217
  Transmission Date: 20120608
  Serious: Yes (Hospitalization)
  Sender: FDA-Public Use
  Company Number: 2012AP000439

PATIENT
  Age: 65 Year
  Sex: Male

DRUGS (7)
  1. OXYCODONE HCL [Concomitant]
  2. RAMIPRIL [Suspect]
     Indication: PRODUCT USED FOR UNKNOWN INDICATION
     Dosage: 2.5 MG;QD;PO
     Route: 048
     Dates: end: 20120131
  3. LANSOPRAZOLE [Concomitant]
  4. GOSERELIN (GOSERELIN) [Concomitant]
  5. BENDROFLUMETHIAZIDE (BENDROFLUMETHIAZIDE) [Suspect]
     Indication: PRODUCT USED FOR UNKNOWN INDICATION
     Dosage: 5 MG;QD
     Dates: end: 20120131
  6. ABIRATERONE (ABIRATERONE) [Suspect]
     Indication: PROSTATE CANCER METASTATIC
     Dosage: 1 G; PO
     Route: 048
     Dates: start: 20120116
  7. METOCLOPRAMIDE [Concomitant]

REACTIONS (5)
  - LOWER RESPIRATORY TRACT INFECTION [None]
  - DYSPNOEA [None]
  - ARRHYTHMIA [None]
  - RENAL FAILURE ACUTE [None]
  - ATRIAL FIBRILLATION [None]
